FAERS Safety Report 7985695-8 (Version None)
Quarter: 2011Q4

REPORT INFORMATION
  Report Type: 
  Country: None (occurrence: None)
  Receive Date: 20111216
  Receipt Date: 20111209
  Transmission Date: 20120403
  Serious: Yes (Hospitalization)
  Sender: FDA-Public Use
  Company Number: US-B.I. PHARMACEUTICALS,INC./RIDGEFIELD-2011-BP-23523BP

PATIENT
  Age: 75 Year
  Sex: Female

DRUGS (3)
  1. PLAVIX [Concomitant]
     Indication: CORONARY ARTERIAL STENT INSERTION
  2. PREDNISONE [Concomitant]
     Indication: RHEUMATOID ARTHRITIS
  3. PRADAXA [Suspect]
     Indication: ATRIAL FIBRILLATION
     Dosage: 300 MG

REACTIONS (1)
  - HAEMORRHAGIC DIATHESIS [None]
